FAERS Safety Report 11646817 (Version 1)
Quarter: 2015Q4

REPORT INFORMATION
  Report Type: Spontaneous
  Country: US (occurrence: US)
  Receive Date: 20151020
  Receipt Date: 20151020
  Transmission Date: 20160304
  Serious: No
  Sender: FDA-Public Use
  Company Number: US-ROCHE-ITM201503IM011604

PATIENT
  Sex: Male
  Weight: 76.27 kg

DRUGS (4)
  1. AMLODIPINE [Concomitant]
     Active Substance: AMLODIPINE BESYLATE
     Indication: BLOOD PRESSURE MEASUREMENT
     Dosage: IN THE AM
     Route: 065
  2. ESBRIET [Suspect]
     Active Substance: PIRFENIDONE
     Dosage: THERAPY RESTARTED WITH 2 CAPSULES TID
     Route: 048
     Dates: start: 201504
  3. ESBRIET [Suspect]
     Active Substance: PIRFENIDONE
     Indication: IDIOPATHIC PULMONARY FIBROSIS
     Dosage: 3 CAPSULES TID
     Route: 048
     Dates: start: 20141211
  4. ESBRIET [Suspect]
     Active Substance: PIRFENIDONE
     Dosage: DOSES AGAIN INCREASE TO 3 CAPSULES TID
     Route: 048

REACTIONS (4)
  - Rash [Not Recovered/Not Resolved]
  - Dizziness [Not Recovered/Not Resolved]
  - Vertigo [Unknown]
  - Sinus disorder [Unknown]

NARRATIVE: CASE EVENT DATE: 2015
